FAERS Safety Report 8170664-8 (Version None)
Quarter: 2012Q1

REPORT INFORMATION
  Report Type: 
  Country: None (occurrence: None)
  Receive Date: 20120228
  Receipt Date: 20120217
  Transmission Date: 20120608
  Serious: Yes (Other)
  Sender: FDA-Public Use
  Company Number: VE-JNJFOC-20120210672

PATIENT
  Sex: Female
  Weight: 60 kg

DRUGS (8)
  1. ARAVA [Concomitant]
     Route: 065
  2. REMICADE [Suspect]
     Indication: PRODUCT USED FOR UNKNOWN INDICATION
     Route: 042
     Dates: start: 20120120
  3. REMICADE [Suspect]
     Route: 042
     Dates: start: 20120213
  4. PANTOP [Concomitant]
     Route: 065
  5. HYZAAR [Concomitant]
     Route: 065
  6. GABAPENTIN [Concomitant]
     Route: 065
  7. HYZAAR [Concomitant]
     Route: 065
  8. METICORTEN [Concomitant]
     Route: 065

REACTIONS (3)
  - HYPOTENSION [None]
  - CYANOSIS [None]
  - RASH [None]
